FAERS Safety Report 13583148 (Version 2)
Quarter: 2017Q2

REPORT INFORMATION
  Report Type: Report from Study
  Country: FR (occurrence: FR)
  Receive Date: 20170525
  Receipt Date: 20170606
  Transmission Date: 20170830
  Serious: Yes (Hospitalization, Other)
  Sender: FDA-Public Use
  Company Number: FR-GILEAD-2017-0274343

PATIENT
  Age: 57 Year
  Sex: Male
  Weight: 65 kg

DRUGS (6)
  1. OMEPRAZOLE. [Concomitant]
     Active Substance: OMEPRAZOLE
     Indication: DYSPEPSIA
     Dosage: 20 MG, QD
     Dates: start: 20140218
  2. TENOFOVIR DISOPROXIL FUMARATE. [Suspect]
     Active Substance: TENOFOVIR DISOPROXIL FUMARATE
     Indication: HEPATITIS B
     Dosage: 1 DF, QD
     Route: 065
     Dates: start: 20130708
  3. SINTROM [Suspect]
     Active Substance: ACENOCOUMAROL
     Indication: PORTAL VEIN THROMBOSIS
     Dosage: UNK
     Route: 065
     Dates: start: 20130407
  4. INNOHEP [Concomitant]
     Active Substance: TINZAPARIN SODIUM
     Dosage: 16000 IU, QD
     Dates: start: 20150507, end: 2015
  5. TARDYFERON [Concomitant]
     Active Substance: FERROUS SULFATE
     Route: 065
  6. AVLOCARDYL                         /00030001/ [Concomitant]
     Active Substance: PROPRANOLOL HYDROCHLORIDE
     Dosage: 160 MG, QD
     Dates: start: 20150507, end: 2015

REACTIONS (2)
  - Gastrointestinal angiodysplasia [Recovered/Resolved]
  - Microcytic anaemia [Recovered/Resolved]

NARRATIVE: CASE EVENT DATE: 20160613
